FAERS Safety Report 8823455 (Version 1)
Quarter: 2012Q4

REPORT INFORMATION
  Report Type: 
  Country: US (occurrence: US)
  Receive Date: 20121003
  Receipt Date: 20121003
  Transmission Date: 20130627
  Serious: Yes (Other)
  Sender: FDA-Public Use
  Company Number: US-JNJFOC-20120911663

PATIENT
  Sex: Male

DRUGS (1)
  1. NICOTINE POLACRILEX STOP SMOKING AID [Suspect]
     Indication: PRODUCT USED FOR UNKNOWN INDICATION
     Route: 002

REACTIONS (2)
  - Haematemesis [Unknown]
  - Accidental exposure to product [Unknown]
